FAERS Safety Report 5073515-3 (Version None)
Quarter: 2006Q3

REPORT INFORMATION
  Report Type: 
  Country: None (occurrence: None)
  Receive Date: 20060717
  Receipt Date: 20051205
  Transmission Date: 20061208
  Serious: No
  Sender: FDA-Public Use
  Company Number: 2005002335

PATIENT
  Age: 76 Year
  Sex: Female

DRUGS (1)
  1. TARCEVA [Suspect]
     Indication: NON-SMALL CELL LUNG CANCER
     Dosage: 150 MG (QD), ORAL
     Route: 048
     Dates: start: 20051024, end: 20051204

REACTIONS (7)
  - BLOOD PRESSURE INCREASED [None]
  - COUGH [None]
  - DERMATITIS ACNEIFORM [None]
  - DYSPNOEA [None]
  - HOT FLUSH [None]
  - SKIN FISSURES [None]
  - WHEEZING [None]
